FAERS Safety Report 7593236-2 (Version None)
Quarter: 2011Q3

REPORT INFORMATION
  Report Type: 
  Country: None (occurrence: None)
  Receive Date: 20110706
  Receipt Date: 20110630
  Transmission Date: 20111222
  Serious: No
  Sender: FDA-Public Use
  Company Number: US-TEVA-289077USA

PATIENT
  Sex: Female
  Weight: 50.848 kg

DRUGS (1)
  1. PLAN B ONE-STEP [Suspect]
     Indication: POST COITAL CONTRACEPTION
     Dosage: 1.5 MILLIGRAM;
     Route: 048
     Dates: start: 20110619, end: 20110619

REACTIONS (7)
  - BACK PAIN [None]
  - NAUSEA [None]
  - DIZZINESS [None]
  - PELVIC PAIN [None]
  - PAIN [None]
  - FATIGUE [None]
  - BREAST TENDERNESS [None]
